FAERS Safety Report 7359260-X (Version None)
Quarter: 2011Q1

REPORT INFORMATION
  Report Type: 
  Country: None (occurrence: None)
  Receive Date: 20110225
  Receipt Date: 20101028
  Transmission Date: 20110831
  Serious: No
  Sender: FDA-Public Use
  Company Number: 317693

PATIENT
  Sex: Female

DRUGS (3)
  1. VICTOZA [Suspect]
     Indication: PRODUCT USED FOR UNKNOWN INDICATION
     Dosage: SUBCUTANEOUS
     Route: 058
  2. GLUCOPHAGE [Concomitant]
  3. METFORMIN (METFORMIN) [Concomitant]

REACTIONS (2)
  - HEADACHE [None]
  - BLOOD GLUCOSE INCREASED [None]
